FAERS Safety Report 8239418-8 (Version None)
Quarter: 2012Q1

REPORT INFORMATION
  Report Type: 
  Country: None (occurrence: None)
  Receive Date: 20120328
  Receipt Date: 20120320
  Transmission Date: 20120608
  Serious: Yes (Hospitalization)
  Sender: FDA-Public Use
  Company Number: US-BAYER-2011-067049

PATIENT
  Age: 30 Year
  Sex: Female
  Weight: 61.224 kg

DRUGS (10)
  1. FEMCON FE [Concomitant]
     Indication: MIGRAINE
  2. YAZ [Suspect]
     Indication: PREMENSTRUAL SYNDROME
  3. YAZ [Suspect]
     Indication: MIGRAINE
  4. IMITREX [Concomitant]
     Dosage: 100 MG, PRN
     Route: 048
     Dates: start: 20070101, end: 20090828
  5. FEMCON FE [Concomitant]
     Indication: CONTRACEPTION
     Dosage: UNK
     Dates: start: 20080101, end: 20090622
  6. FEMCON FE [Concomitant]
     Indication: PREMENSTRUAL SYNDROME
     Dosage: UNK
     Dates: start: 20090801, end: 20091101
  7. ATIVAN [Concomitant]
     Indication: PREMENSTRUAL SYNDROME
  8. YAZ [Suspect]
     Indication: ACNE
  9. YAZ [Suspect]
     Indication: CONTRACEPTION
     Dosage: UNK
     Dates: start: 20090623, end: 20090806
  10. ATIVAN [Concomitant]
     Indication: ANXIETY
     Dosage: UNK
     Dates: start: 20080101

REACTIONS (18)
  - CHOLECYSTITIS [None]
  - CHEST DISCOMFORT [None]
  - ABDOMINAL DISCOMFORT [None]
  - MUSCULOSKELETAL CHEST PAIN [None]
  - DYSPEPSIA [None]
  - EMOTIONAL DISTRESS [None]
  - NAUSEA [None]
  - PAIN [None]
  - GENERAL PHYSICAL HEALTH DETERIORATION [None]
  - DIARRHOEA [None]
  - INJURY [None]
  - ABDOMINAL PAIN [None]
  - BACK PAIN [None]
  - DYSPNOEA [None]
  - ABDOMINAL PAIN UPPER [None]
  - GASTROOESOPHAGEAL REFLUX DISEASE [None]
  - ANXIETY [None]
  - WEIGHT DECREASED [None]
